FAERS Safety Report 6496831-7 (Version None)
Quarter: 2009Q4

REPORT INFORMATION
  Report Type: 
  Country: None (occurrence: None)
  Receive Date: 20091125
  Receipt Date: 20090202
  Transmission Date: 20100525
  Serious: Yes (Other)
  Sender: FDA-Public Use
  Company Number: 2009BH001891

PATIENT
  Age: 72 Year
  Sex: Male

DRUGS (11)
  1. DIANEAL [Suspect]
     Indication: PERITONEAL DIALYSIS
     Dosage: 8.9 L; EVERY DAY; IP
     Route: 033
     Dates: start: 20071030
  2. DIANEAL [Suspect]
     Indication: PERITONEAL DIALYSIS
     Dosage: 2 L; EVERY DAY; IP
     Route: 033
     Dates: start: 20071030
  3. EPOGEN [Concomitant]
  4. CALCITRIOL [Concomitant]
  5. POTASSIUM [Concomitant]
  6. CIPRO [Concomitant]
  7. NEPHRO-VITE [Concomitant]
  8. PRILOSEC [Concomitant]
  9. VALIUM [Concomitant]
  10. DIPHENHYDRAMINE [Concomitant]
  11. LACTULOSE [Concomitant]

REACTIONS (2)
  - PERITONEAL DIALYSIS COMPLICATION [None]
  - PERITONITIS BACTERIAL [None]
